FAERS Safety Report 4723830-5 (Version None)
Quarter: 2005Q3

REPORT INFORMATION
  Report Type: 
  Country: None (occurrence: None)
  Receive Date: 20050721
  Receipt Date: 20050713
  Transmission Date: 20060218
  Serious: Yes (Death)
  Sender: FDA-Public Use
  Company Number: S05-USA-02406-01

PATIENT
  Age: 56 Year
  Sex: Female

DRUGS (2)
  1. LEXAPRO [Suspect]
  2. GEODON [Concomitant]

REACTIONS (5)
  - EXERCISE ELECTROCARDIOGRAM ABNORMAL [None]
  - FALL [None]
  - LOSS OF CONSCIOUSNESS [None]
  - RESUSCITATION [None]
  - SYNCOPE [None]
